FAERS Safety Report 15436848 (Version 1)
Quarter: 2018Q3

REPORT INFORMATION
  Report Type: Report from Study
  Country: US (occurrence: US)
  Receive Date: 20180927
  Receipt Date: 20180927
  Transmission Date: 20181010
  Serious: Yes (Other)
  Sender: FDA-Public Use
  Company Number: US-BAUSCH-BL-2018-026257

PATIENT
  Sex: Female

DRUGS (4)
  1. UCERIS [Suspect]
     Active Substance: BUDESONIDE
     Indication: PRODUCT USE IN UNAPPROVED INDICATION
     Dosage: QD
     Route: 048
  2. UCERIS [Suspect]
     Active Substance: BUDESONIDE
     Dosage: AUG
     Route: 048
  3. UCERIS [Suspect]
     Active Substance: BUDESONIDE
     Indication: COLITIS MICROSCOPIC
     Dosage: JUN/JUL, QOD (EVERY OTHER DAY/EVERY 3RD DAY)
     Route: 048
  4. UCERIS [Suspect]
     Active Substance: BUDESONIDE
     Route: 048

REACTIONS (5)
  - Product use in unapproved indication [Not Recovered/Not Resolved]
  - Colitis microscopic [Unknown]
  - Symptom recurrence [Unknown]
  - Drug effect incomplete [Unknown]
  - Intentional product misuse [Recovered/Resolved]
